FAERS Safety Report 9495793 (Version 1)
Quarter: 2013Q3

REPORT INFORMATION
  Report Type: Spontaneous
  Country: IT (occurrence: IT)
  Receive Date: 20130903
  Receipt Date: 20130903
  Transmission Date: 20140515
  Serious: Yes (Other)
  Sender: FDA-Public Use
  Company Number: IT-MYLANLABS-2013S1013357

PATIENT
  Age: 66 Year
  Sex: Male

DRUGS (2)
  1. CLOPIDOGREL [Suspect]
     Indication: MYOCARDIAL ISCHAEMIA
     Route: 048
     Dates: start: 20120501, end: 20120517
  2. CARDIOASPIRIN [Interacting]
     Indication: MYOCARDIAL ISCHAEMIA
     Route: 048
     Dates: start: 20120501, end: 20130517

REACTIONS (3)
  - Drug interaction [Recovering/Resolving]
  - Blood pressure increased [Recovering/Resolving]
  - Epistaxis [Recovering/Resolving]
